FAERS Safety Report 7962595-0 (Version None)
Quarter: 2011Q4

REPORT INFORMATION
  Report Type: 
  Country: None (occurrence: None)
  Receive Date: 20111207
  Receipt Date: 20111202
  Transmission Date: 20120403
  Serious: Yes (Life-Threatening, Hospitalization)
  Sender: FDA-Public Use
  Company Number: FR-PFIZER INC-2011283828

PATIENT
  Age: 65 Year
  Sex: Female

DRUGS (2)
  1. TANGANIL [Suspect]
     Indication: DIZZINESS
     Dosage: UNK
     Route: 048
     Dates: start: 20110701, end: 20110905
  2. IBUPROFEN (ADVIL) [Suspect]
     Indication: TRACHEITIS
     Dosage: 1 DF, 3X/DAY
     Route: 048
     Dates: start: 20110903, end: 20110905

REACTIONS (2)
  - HERPES ZOSTER [None]
  - AGRANULOCYTOSIS [None]
